FAERS Safety Report 4789169-7 (Version None)
Quarter: 2005Q4

REPORT INFORMATION
  Report Type: 
  Country: None (occurrence: None)
  Receive Date: 20051004
  Receipt Date: 20050919
  Transmission Date: 20060501
  Serious: Yes (Death)
  Sender: FDA-Public Use
  Company Number: DSA_70756_2005

PATIENT
  Age: 52 Year

DRUGS (3)
  1. OXYCODONE HCL [Suspect]
     Dosage: DF
  2. TRAMADOL HCL [Suspect]
     Dosage: DF, PO
     Route: 048
  3. BENZODIAZEPINE [Suspect]
     Dosage: DF, PO
     Route: 048

REACTIONS (1)
  - MULTIPLE DRUG OVERDOSE [None]
